FAERS Safety Report 25762345 (Version 2)
Quarter: 2025Q4

REPORT INFORMATION
  Report Type: Spontaneous
  Country: GB (occurrence: GB)
  Receive Date: 20250904
  Receipt Date: 20251010
  Transmission Date: 20260118
  Serious: Yes (Death)
  Sender: MYLAN
  Company Number: GB-MYLANLABS-2025M1068855

PATIENT
  Age: 60 Year
  Sex: Male
  Weight: 59.2 kg

DRUGS (1)
  1. CLOZARIL [Suspect]
     Active Substance: CLOZAPINE
     Indication: Schizophrenia
     Dosage: 175 MILLIGRAM, BID
     Dates: start: 20021017

REACTIONS (2)
  - Pancreatic carcinoma metastatic [Fatal]
  - Anaemia [Unknown]
